APPROVED DRUG PRODUCT: DEPAKENE
Active Ingredient: VALPROIC ACID
Strength: 250MG/5ML **Federal Register determination that product was not discontinued or withdrawn for safety or effectiveness reasons**
Dosage Form/Route: SYRUP;ORAL
Application: N018082 | Product #001
Applicant: ABBVIE INC
Approved: Approved Prior to Jan 1, 1982 | RLD: Yes | RS: No | Type: DISCN